FAERS Safety Report 12918135 (Version 1)
Quarter: 2016Q4

REPORT INFORMATION
  Report Type: Spontaneous
  Country: US (occurrence: US)
  Receive Date: 20161107
  Receipt Date: 20161107
  Transmission Date: 20170207
  Serious: No
  Sender: FDA-Public Use
  Company Number: US-ANTARES PHARMA, INC.-2016-SPO-MX-0223

PATIENT
  Sex: Male

DRUGS (1)
  1. OTREXUP [Suspect]
     Active Substance: METHOTREXATE
     Indication: UVEITIS

REACTIONS (2)
  - Device issue [Unknown]
  - Off label use [Unknown]
